FAERS Safety Report 24327723 (Version 1)
Quarter: 2024Q3

REPORT INFORMATION
  Report Type: Spontaneous
  Country: PR (occurrence: PR)
  Receive Date: 20240917
  Receipt Date: 20240917
  Transmission Date: 20241016
  Serious: No
  Sender: ABBVIE
  Company Number: PR-ABBVIE-5921147

PATIENT
  Age: 51 Year
  Sex: Female
  Weight: 81.647 kg

DRUGS (1)
  1. SKYRIZI [Suspect]
     Active Substance: RISANKIZUMAB-RZAA
     Indication: Psoriasis
     Route: 058
     Dates: start: 20200103

REACTIONS (1)
  - Costochondritis [Recovering/Resolving]

NARRATIVE: CASE EVENT DATE: 20240901
